FAERS Safety Report 9829976 (Version 1)
Quarter: 2014Q1

REPORT INFORMATION
  Report Type: Spontaneous
  Country: US (occurrence: US)
  Receive Date: 20140120
  Receipt Date: 20140120
  Transmission Date: 20141002
  Serious: No
  Sender: FDA-Public Use
  Company Number: US-009507513-1401USA008016

PATIENT
  Sex: Female

DRUGS (1)
  1. IMPLANON [Suspect]
     Dosage: UNK, FREQUENCY: 1 ROD/ THREE YEARS
     Route: 059
     Dates: end: 20140116

REACTIONS (5)
  - Device breakage [Unknown]
  - No adverse event [Unknown]
  - Device difficult to use [Unknown]
  - Medical device complication [Unknown]
  - Product quality issue [Unknown]
